FAERS Safety Report 7029345-6 (Version None)
Quarter: 2010Q4

REPORT INFORMATION
  Report Type: 
  Country: None (occurrence: None)
  Receive Date: 20101005
  Receipt Date: 20100924
  Transmission Date: 20110411
  Serious: Yes (Hospitalization, Other)
  Sender: FDA-Public Use
  Company Number: PHHY2010AU05004

PATIENT
  Sex: Male

DRUGS (8)
  1. CLOZARIL [Suspect]
     Dosage: 75 MG, UNK
     Dates: start: 20020509
  2. CLOZARIL [Suspect]
     Dosage: 500 MG, NOCTURNAL
     Route: 048
     Dates: start: 20020509
  3. CLOZARIL [Suspect]
     Dosage: 600 MG
  4. CLOZARIL [Suspect]
     Dosage: 500 MG
  5. VALPROIC ACID [Concomitant]
     Dosage: 200 MG, MORNING
  6. VALPROIC ACID [Concomitant]
     Dosage: 1.5 MG, NOCTURNAL
  7. CABERGOLINE [Concomitant]
     Dosage: 0.5 MG, WEDNESDAY
     Route: 048
  8. BENZTROPINE MESYLATE [Concomitant]
     Dosage: 1 MG
     Route: 048

REACTIONS (3)
  - NEUTROPHIL COUNT DECREASED [None]
  - PSYCHOTIC DISORDER [None]
  - WHITE BLOOD CELL COUNT DECREASED [None]
